FAERS Safety Report 6122843-9 (Version None)
Quarter: 2009Q1

REPORT INFORMATION
  Report Type: 
  Country: None (occurrence: None)
  Receive Date: 20090318
  Receipt Date: 20090312
  Transmission Date: 20090719
  Serious: Yes (Other)
  Sender: FDA-Public Use
  Company Number: A0772807A

PATIENT
  Sex: Female

DRUGS (6)
  1. TREXIMET [Suspect]
     Indication: MIGRAINE
     Dosage: 1TAB AS REQUIRED
     Route: 048
     Dates: start: 20081101, end: 20090212
  2. IMITREX [Suspect]
     Indication: MIGRAINE
     Dosage: 100MG AS REQUIRED
     Route: 048
  3. TOPAMAX [Concomitant]
  4. UNKNOWN MEDICATION [Concomitant]
  5. MULTI-VITAMIN [Concomitant]
  6. CALCIUM [Concomitant]

REACTIONS (4)
  - BLOOD IRON DECREASED [None]
  - DRUG INEFFECTIVE [None]
  - HAEMATEMESIS [None]
  - PROTEIN TOTAL DECREASED [None]
